FAERS Safety Report 24162832 (Version 1)
Quarter: 2024Q3

REPORT INFORMATION
  Report Type: Spontaneous
  Country: US (occurrence: US)
  Receive Date: 20240801
  Receipt Date: 20240801
  Transmission Date: 20241016
  Serious: No
  Sender: PFIZER
  Company Number: US-PFIZER INC-PV202400099909

PATIENT
  Age: 80 Year
  Sex: Female
  Weight: 56 kg

DRUGS (2)
  1. EXEMESTANE [Suspect]
     Active Substance: EXEMESTANE
     Dosage: UNK
     Dates: start: 20190220, end: 2024
  2. LYRICA [Concomitant]
     Active Substance: PREGABALIN
     Dosage: 1 CAP, ORAL, BID, NOT TAKING
     Route: 048

REACTIONS (1)
  - Diarrhoea [Unknown]

NARRATIVE: CASE EVENT DATE: 20240101
